FAERS Safety Report 6222831-8 (Version None)
Quarter: 2009Q2

REPORT INFORMATION
  Report Type: 
  Country: None (occurrence: None)
  Receive Date: 20090611
  Receipt Date: 20090604
  Transmission Date: 20091009
  Serious: Yes (Other)
  Sender: FDA-Public Use
  Company Number: A0790181A

PATIENT
  Age: 44 Year
  Sex: Female

DRUGS (3)
  1. AVAMYS [Suspect]
     Indication: ASTHMA
     Dosage: 2PUFF PER DAY
     Route: 045
     Dates: start: 20090517, end: 20090604
  2. SERETIDE [Suspect]
     Indication: ASTHMA
     Route: 055
     Dates: start: 20050101
  3. ETHINYLESTRADIOL + DESOGESTREL [Concomitant]

REACTIONS (2)
  - FACIAL PALSY [None]
  - HYPOAESTHESIA [None]
